FAERS Safety Report 8521540-X (Version None)
Quarter: 2012Q3

REPORT INFORMATION
  Report Type: 
  Country: None (occurrence: None)
  Receive Date: 20120719
  Receipt Date: 20120712
  Transmission Date: 20120928
  Serious: Yes (Hospitalization, Disabling, Other)
  Sender: FDA-Public Use
  Company Number: US-009507513-1011USA00404

PATIENT

DRUGS (10)
  1. FOSAMAX [Suspect]
     Dosage: 70 MG, UNK
     Dates: start: 20080908, end: 20100101
  2. FOSAMAX [Suspect]
     Dosage: 70 MG, QW
     Route: 048
     Dates: start: 20080901, end: 20091107
  3. VAGIFEM [Concomitant]
  4. MK-9278 [Concomitant]
  5. BONIVA [Suspect]
     Indication: OSTEOPENIA
     Dosage: 150 MG, QM
     Route: 048
     Dates: start: 20080520, end: 20080801
  6. CYMBALTA [Concomitant]
     Indication: DEPRESSION
     Dosage: 60 MG, QD
     Dates: start: 20070101
  7. FOSAMAX [Suspect]
     Indication: OSTEOPENIA
     Dosage: 35 MG, QW
     Route: 048
     Dates: start: 20050601, end: 20080601
  8. FOSAMAX [Suspect]
     Dosage: 70 MG, UNK
     Route: 048
     Dates: start: 20090127, end: 20090611
  9. ALDACTAZIDE [Concomitant]
  10. OMEGA-3 MARINE TRIGLYCERIDES [Concomitant]

REACTIONS (27)
  - LIGAMENT DISORDER [None]
  - BACK PAIN [None]
  - BONE DENSITY DECREASED [None]
  - FOOT DEFORMITY [None]
  - PIRIFORMIS SYNDROME [None]
  - COMPRESSION FRACTURE [None]
  - ARTHROPATHY [None]
  - CYST [None]
  - OSTEOMA [None]
  - OSTEOPOROSIS [None]
  - SCIATICA [None]
  - GASTROOESOPHAGEAL REFLUX DISEASE [None]
  - MUSCULOSKELETAL PAIN [None]
  - CARDIAC FAILURE [None]
  - FEMUR FRACTURE [None]
  - PAIN IN EXTREMITY [None]
  - FOOT FRACTURE [None]
  - ARTHRALGIA [None]
  - JOINT INSTABILITY [None]
  - MUSCULAR WEAKNESS [None]
  - IMPAIRED HEALING [None]
  - RADICULAR PAIN [None]
  - METATARSALGIA [None]
  - FALL [None]
  - PAIN [None]
  - LOOSE BODY IN JOINT [None]
  - ARTHRITIS [None]
